FAERS Safety Report 22060278 (Version 2)
Quarter: 2024Q1

REPORT INFORMATION
  Report Type: Spontaneous
  Country: US (occurrence: US)
  Receive Date: 20230303
  Receipt Date: 20240313
  Transmission Date: 20240410
  Serious: No
  Sender: FDA-Public Use
  Company Number: US-OAKRUM PHARMA-2023OAK00003

PATIENT
  Age: 48 Year
  Sex: Female
  Weight: 86.168 kg

DRUGS (16)
  1. PYRIMETHAMINE [Suspect]
     Active Substance: PYRIMETHAMINE
     Dosage: 25 MG, 3X/DAY
     Route: 048
     Dates: start: 20220527
  2. AMLODIPINE [Concomitant]
     Active Substance: AMLODIPINE BESYLATE
     Dosage: 10 MG, 1X/DAY
  3. AZITHROMYCIN [Concomitant]
     Active Substance: AZITHROMYCIN
     Dosage: 500 MG, 1X/DAY
  4. COLACE [Concomitant]
     Active Substance: DOCUSATE SODIUM
     Dosage: 8.6-50 MG, 2X/DAY
  5. DICLOFENAC [Concomitant]
     Active Substance: DICLOFENAC
     Dosage: 75 MG, 2X/DAY
  6. DOXYCYCLINE [Concomitant]
     Active Substance: DOXYCYCLINE
     Dosage: 100 MG, 1X/DAY
  7. FLUCONAZOLE [Concomitant]
     Active Substance: FLUCONAZOLE
     Dosage: 100 MG, 1X/DAY
  8. LAMICTAL XR [Concomitant]
     Active Substance: LAMOTRIGINE
     Dosage: 25 MG, 1X/DAY
  9. LEUCOVORIN CALCIUM [Concomitant]
     Active Substance: LEUCOVORIN CALCIUM
     Dosage: 10 MG, 1X/DAY
  10. MEPRON [Concomitant]
     Active Substance: ATOVAQUONE
     Dosage: 750 MG, 2X/DAY
  11. METAXALONE [Concomitant]
     Active Substance: METAXALONE
     Dosage: 800 MG, EVERY 8 HOURS
  12. MIRALAX [Concomitant]
     Active Substance: POLYETHYLENE GLYCOL 3350
     Dosage: 17 G, 1X/DAY
  13. MORPHINE [Concomitant]
     Active Substance: MORPHINE
     Dosage: 30 MG, EVERY 8 HOURS
  14. PROVIGIL [Concomitant]
     Active Substance: MODAFINIL
     Dosage: 200 MG, 1X/DAY
  15. VALIUM [Concomitant]
     Active Substance: DIAZEPAM
     Dosage: 5 MG, 1X/DAY
  16. VIIBRYD [Concomitant]
     Active Substance: VILAZODONE HYDROCHLORIDE
     Dosage: 40 MG, 1X/DAY

REACTIONS (3)
  - Nausea [Unknown]
  - Diarrhoea [Unknown]
  - Vomiting [Unknown]

NARRATIVE: CASE EVENT DATE: 20220527
